FAERS Safety Report 24354052 (Version 2)
Quarter: 2024Q4

REPORT INFORMATION
  Report Type: Spontaneous
  Country: JP (occurrence: JP)
  Receive Date: 20240923
  Receipt Date: 20241003
  Transmission Date: 20250115
  Serious: Yes (Hospitalization, Other)
  Sender: GUERBET
  Company Number: JP-GUERBETG_JAPAN-JP-20240136

PATIENT
  Age: 69 Year
  Sex: Female

DRUGS (2)
  1. LIPIODOL [Suspect]
     Active Substance: ETHIODIZED OIL
     Indication: Splenic artery embolisation
     Dosage: LIPIODOL MIXED WITH NBCA AT A 1:1 RATIO
     Route: 013
  2. ENBUCRILATE [Suspect]
     Active Substance: ENBUCRILATE
     Indication: Splenic artery embolisation
     Dosage: LIPIODOL MIXED WITH NBCA AT A 1:1 RATIO
     Route: 013

REACTIONS (5)
  - Pancreatic infarction [Unknown]
  - Pancreatitis necrotising [Unknown]
  - Splenic vein thrombosis [Unknown]
  - Portal vein thrombosis [Unknown]
  - Splenic infarction [Unknown]
